FAERS Safety Report 13659327 (Version 1)
Quarter: 2017Q2

REPORT INFORMATION
  Report Type: Spontaneous
  Country: US (occurrence: US)
  Receive Date: 20170615
  Receipt Date: 20170615
  Transmission Date: 20170830
  Serious: Yes (Disabling)
  Sender: FDA-Public Use
  Company Number: None

PATIENT
  Age: 29 Year
  Sex: Female
  Weight: 55.35 kg

DRUGS (3)
  1. IRON [Concomitant]
     Active Substance: IRON
  2. VITAMIN B [Concomitant]
     Active Substance: VITAMIN B
  3. AVELOX [Suspect]
     Active Substance: MOXIFLOXACIN HYDROCHLORIDE
     Indication: PHARYNGITIS BACTERIAL
     Route: 048
     Dates: start: 20100403, end: 20100404

REACTIONS (41)
  - Abdominal distension [None]
  - Abdominal pain [None]
  - Dyshidrotic eczema [None]
  - Fatigue [None]
  - Food intolerance [None]
  - Weight decreased [None]
  - Weight increased [None]
  - Contraindicated product administered [None]
  - Movement disorder [None]
  - Diarrhoea [None]
  - Defaecation urgency [None]
  - Poor quality sleep [None]
  - Alopecia [None]
  - Palpitations [None]
  - Dry eye [None]
  - Dizziness [None]
  - Sleep disorder due to general medical condition, insomnia type [None]
  - Contraindicated drug prescribed [None]
  - Abdominal pain lower [None]
  - Dyspnoea [None]
  - Frequent bowel movements [None]
  - Loss of libido [None]
  - Sensory disturbance [None]
  - Dehydration [None]
  - Claustrophobia [None]
  - Cognitive disorder [None]
  - Toxicity to various agents [None]
  - Hypohidrosis [None]
  - Joint crepitation [None]
  - Nausea [None]
  - Skin disorder [None]
  - Feeling abnormal [None]
  - Memory impairment [None]
  - Hormone level abnormal [None]
  - Hypotonia [None]
  - Decreased appetite [None]
  - Motion sickness [None]
  - Panic attack [None]
  - Vertigo [None]
  - Malabsorption [None]
  - Stress [None]

NARRATIVE: CASE EVENT DATE: 20100405
